FAERS Safety Report 9473946 (Version 1)
Quarter: 2013Q3

REPORT INFORMATION
  Report Type: Spontaneous
  Country: US (occurrence: US)
  Receive Date: 20130823
  Receipt Date: 20130823
  Transmission Date: 20140515
  Serious: Yes (Other)
  Sender: FDA-Public Use
  Company Number: US-BRISTOL-MYERS SQUIBB COMPANY-17170242

PATIENT
  Age: 75 Year
  Sex: Female
  Weight: 69.84 kg

DRUGS (1)
  1. SPRYCEL [Suspect]
     Indication: CHRONIC MYELOID LEUKAEMIA
     Dosage: DOSE REDUCED TO 50 MG/D ON MAY2008
     Route: 048
     Dates: end: 2012

REACTIONS (2)
  - Pulmonary hypertension [Not Recovered/Not Resolved]
  - Pancytopenia [Unknown]
